FAERS Safety Report 17320467 (Version 1)
Quarter: 2020Q1

REPORT INFORMATION
  Report Type: Other
  Country: PR (occurrence: US)
  Receive Date: 20200126
  Receipt Date: 20200126
  Transmission Date: 20200409
  Serious: No
  Sender: FDA-Public Use
  Company Number: PR-ACORDA-ACO_156806_2019

PATIENT
  Sex: Female

DRUGS (1)
  1. AMPYRA [Suspect]
     Active Substance: DALFAMPRIDINE
     Indication: PRODUCT USED FOR UNKNOWN INDICATION
     Dosage: 10 MILLIGRAM, BID
     Route: 065
     Dates: start: 20130605

REACTIONS (5)
  - Pain [Unknown]
  - Fatigue [Unknown]
  - Ill-defined disorder [Unknown]
  - Limb discomfort [Unknown]
  - Therapeutic product effect decreased [Unknown]
